FAERS Safety Report 22723391 (Version 2)
Quarter: 2023Q4

REPORT INFORMATION
  Report Type: Report from Study
  Country: US (occurrence: US)
  Receive Date: 20230719
  Receipt Date: 20231005
  Transmission Date: 20240109
  Serious: Yes (Other)
  Sender: FDA-Public Use
  Company Number: US-ABBVIE-4702893

PATIENT
  Sex: Male

DRUGS (2)
  1. HUMIRA [Suspect]
     Active Substance: ADALIMUMAB
     Indication: Uveitis
     Dosage: CITRATE FREE?FORM STRENGTH 40 MILLIGRAMS
     Route: 058
     Dates: start: 20190326
  2. HUMIRA [Suspect]
     Active Substance: ADALIMUMAB
     Indication: Uveitis
     Dosage: FORM STRENGTH 40 MILLIGRAMS
     Route: 058

REACTIONS (8)
  - Blindness unilateral [Unknown]
  - Keratitis [Unknown]
  - Eye infection staphylococcal [Unknown]
  - Diarrhoea [Unknown]
  - Fatigue [Unknown]
  - Glaucoma [Unknown]
  - Blindness transient [Unknown]
  - Blindness [Unknown]

NARRATIVE: CASE EVENT DATE: 20230101
